FAERS Safety Report 23163237 (Version 1)
Quarter: 2023Q4

REPORT INFORMATION
  Report Type: Spontaneous
  Country: TW (occurrence: TW)
  Receive Date: 20231109
  Receipt Date: 20231109
  Transmission Date: 20240109
  Serious: Yes (Hospitalization, Other)
  Sender: FDA-Public Use
  Company Number: TW-BRISTOL-MYERS SQUIBB COMPANY-2023-159975

PATIENT
  Age: 66 Year
  Sex: Male

DRUGS (1)
  1. ELIQUIS [Suspect]
     Active Substance: APIXABAN
     Indication: Product used for unknown indication

REACTIONS (5)
  - Hemiparesis [Recovering/Resolving]
  - Hemianopia [Recovering/Resolving]
  - Treatment noncompliance [Unknown]
  - Dysarthria [Recovering/Resolving]
  - Neurologic neglect syndrome [Recovering/Resolving]
